FAERS Safety Report 7053746-3 (Version None)
Quarter: 2010Q4

REPORT INFORMATION
  Report Type: 
  Country: None (occurrence: None)
  Receive Date: 20101020
  Receipt Date: 20101014
  Transmission Date: 20110411
  Serious: Yes (Death)
  Sender: FDA-Public Use
  Company Number: A0886727A

PATIENT
  Age: 55 Year
  Sex: Male

DRUGS (8)
  1. ZOFRAN [Suspect]
     Indication: PROPHYLAXIS OF NAUSEA AND VOMITING
     Dosage: 8MG UNKNOWN
     Route: 048
     Dates: start: 20100929
  2. LORAZEPAM [Concomitant]
  3. COMPAZINE [Concomitant]
  4. ULTRAM [Concomitant]
  5. METHADONE [Concomitant]
  6. ZOLOFT [Concomitant]
  7. METFORMIN HCL [Concomitant]
  8. CHEMOTHERAPY [Concomitant]

REACTIONS (1)
  - LUNG NEOPLASM MALIGNANT [None]
